FAERS Safety Report 5885343-7 (Version None)
Quarter: 2008Q3

REPORT INFORMATION
  Report Type: 
  Country: None (occurrence: None)
  Receive Date: 20080912
  Receipt Date: 20080903
  Transmission Date: 20090109
  Serious: Yes (Hospitalization, Other)
  Sender: FDA-Public Use
  Company Number: 2008BI022955

PATIENT
  Age: 22 Year
  Sex: Female
  Weight: 72.5755 kg

DRUGS (1)
  1. TYSABRI [Suspect]
     Indication: MULTIPLE SCLEROSIS
     Dosage: 300 MG; QM; IV
     Route: 042
     Dates: start: 20080707

REACTIONS (4)
  - DYSPHAGIA [None]
  - HEADACHE [None]
  - INFUSION SITE PAIN [None]
  - PETIT MAL EPILEPSY [None]
